FAERS Safety Report 21668026 (Version 1)
Quarter: 2022Q4

REPORT INFORMATION
  Report Type: Spontaneous
  Country: US (occurrence: US)
  Receive Date: 20221201
  Receipt Date: 20221201
  Transmission Date: 20230113
  Serious: Yes (Other)
  Sender: FDA-Public Use
  Company Number: US-NOVOPROD-985633

PATIENT
  Sex: Female
  Weight: 102.05 kg

DRUGS (1)
  1. OZEMPIC [Suspect]
     Active Substance: SEMAGLUTIDE
     Indication: Diabetes mellitus
     Dosage: 1 MG, QW
     Route: 058

REACTIONS (4)
  - Hepatic cirrhosis [Unknown]
  - Amyloidosis [Unknown]
  - Surgery [Unknown]
  - Hepatic steatosis [Unknown]
